FAERS Safety Report 24457045 (Version 1)
Quarter: 2024Q4

REPORT INFORMATION
  Report Type: Other
  Country: US (occurrence: US)
  Receive Date: 20241018
  Receipt Date: 20241018
  Transmission Date: 20250114
  Serious: No
  Sender: WOODWARD PHARMA SERVICES
  Company Number: US-WW-2024-063313

PATIENT
  Age: 34 Year
  Sex: Male

DRUGS (1)
  1. FLUCONAZOLE [Suspect]
     Active Substance: FLUCONAZOLE
     Indication: Coccidioidomycosis

REACTIONS (2)
  - Transaminases increased [Recovered/Resolved]
  - Product use in unapproved indication [Unknown]
